FAERS Safety Report 4314047-7 (Version None)
Quarter: 2004Q1

REPORT INFORMATION
  Report Type: 
  Country: None (occurrence: None)
  Receive Date: 20040308
  Receipt Date: 20040308
  Transmission Date: 20041129
  Serious: Yes (Hospitalization)
  Sender: FDA-Public Use
  Company Number: None

PATIENT
  Sex: Male
  Weight: 70 kg

DRUGS (16)
  1. NIASPAN [Suspect]
     Indication: DYSLIPIDAEMIA
     Dosage: 1 GM BID ORAL
     Route: 048
  2. AMIODARONE HCL [Suspect]
     Indication: ATRIAL FIBRILLATION
     Dosage: 200 MG DAILY ORAL
     Route: 048
  3. AMIODARONE HCL [Suspect]
     Indication: CARDIAC FAILURE CONGESTIVE
     Dosage: 200 MG DAILY ORAL
     Route: 048
  4. ELAVIL [Concomitant]
  5. CELEXA [Concomitant]
  6. NIASPAN [Concomitant]
  7. AMIODARONE HCL [Concomitant]
  8. LANSOPRAZOLE [Concomitant]
  9. CARVEDILOL [Concomitant]
  10. PLAVIX [Concomitant]
  11. NEURONTIN [Concomitant]
  12. DIGOXIN [Concomitant]
  13. OXYCONTIN [Concomitant]
  14. OXYCODONE [Concomitant]
  15. LASIX [Concomitant]
  16. KCL TAB [Concomitant]

REACTIONS (4)
  - DEEP VEIN THROMBOSIS [None]
  - HEMIPARESIS [None]
  - HEPATOTOXICITY [None]
  - LIVER FUNCTION TEST ABNORMAL [None]
